FAERS Safety Report 7213235-X (Version None)
Quarter: 2011Q1

REPORT INFORMATION
  Report Type: 
  Country: None (occurrence: None)
  Receive Date: 20110106
  Receipt Date: 20101230
  Transmission Date: 20110831
  Serious: Yes (Other)
  Sender: FDA-Public Use
  Company Number: US-PERRIGO-10US000077

PATIENT
  Sex: Female
  Weight: 108.84 kg

DRUGS (19)
  1. LANTUS [Concomitant]
     Indication: TYPE 2 DIABETES MELLITUS
     Dosage: 45 UNITS, BID
     Route: 058
  2. ASPIRIN [Concomitant]
     Indication: CEREBROVASCULAR ACCIDENT
     Dosage: 81 MG, QD
     Route: 048
  3. LASIX [Concomitant]
     Indication: OEDEMA
     Dosage: 40 MG, BID
     Route: 048
  4. TRAZODONE HCL [Concomitant]
     Indication: INSOMNIA
     Dosage: 100 MG, QD AT BEDTIME
     Route: 048
  5. ADVAIR [Concomitant]
     Indication: CHRONIC OBSTRUCTIVE PULMONARY DISEASE
     Dosage: 2 PUFFS, BID
     Route: 055
  6. LISINOPRIL [Concomitant]
     Indication: HYPERTENSION
     Dosage: 20 MG, QD
     Route: 048
  7. OMEPRAZOLE [Concomitant]
     Indication: GASTROOESOPHAGEAL REFLUX DISEASE
     Dosage: 20 MG, QD AT BEDTIME
     Route: 048
  8. CELEBREX [Concomitant]
     Indication: ARTHRITIS
     Dosage: 200 MG, BID
     Route: 048
  9. TOPROL-XL [Concomitant]
     Indication: HYPERTENSION
     Dosage: 100 MG, QD
     Route: 048
  10. COMBIVENT [Concomitant]
     Indication: CHRONIC OBSTRUCTIVE PULMONARY DISEASE
     Dosage: 2 PUFFS, BID
     Route: 055
  11. LORTAB [Concomitant]
     Indication: PAIN
     Dosage: 5MG/ 500 MG PRN
     Route: 048
  12. NITETIME PE SINUS LIQGL 247 [Suspect]
     Indication: NASAL CONGESTION
     Dosage: 2 SOFTGELS, ONCE
     Route: 048
     Dates: start: 20101229, end: 20101229
  13. HUMALOG [Concomitant]
     Indication: TYPE 2 DIABETES MELLITUS
     Dosage: 10 UNITS PLUS SLIDING SCALE DOSE, TID
     Route: 058
  14. LIPITOR [Concomitant]
     Indication: BLOOD CHOLESTEROL INCREASED
     Dosage: 10 MG, QD AT BEDTIME
     Route: 048
  15. POTASSIUM CHLORIDE [Concomitant]
     Indication: SUPPLEMENTATION THERAPY
     Dosage: 10 MEQ, QD
     Route: 048
  16. MIRAPEX [Concomitant]
     Indication: RESTLESS LEGS SYNDROME
     Dosage: 1 MG, QD AT BEDTIME
     Route: 048
  17. PLAVIX [Concomitant]
     Indication: CEREBROVASCULAR ACCIDENT
     Dosage: 75 MG, QD
     Route: 048
  18. SYMLIN [Concomitant]
     Indication: DIABETES MELLITUS
     Dosage: 15 MEQ, TID
     Route: 058
  19. LYRICA [Concomitant]
     Indication: NEUROPATHY PERIPHERAL
     Dosage: 100 MG, TID
     Route: 048

REACTIONS (3)
  - HALLUCINATION [None]
  - NIGHTMARE [None]
  - HALLUCINATION, VISUAL [None]
